FAERS Safety Report 10621568 (Version 1)
Quarter: 2014Q4

REPORT INFORMATION
  Report Type: Spontaneous
  Country: US (occurrence: None)
  Receive Date: 20141128
  Receipt Date: 20141128
  Transmission Date: 20150529
  Serious: Yes (Other)
  Sender: FDA-Public Use
  Company Number: AEGR000617

PATIENT
  Age: 66 Year
  Sex: Female
  Weight: 61.7 kg

DRUGS (3)
  1. ESTRADIOL. [Concomitant]
     Active Substance: ESTRADIOL
  2. JUXTAPID [Suspect]
     Active Substance: LOMITAPIDE MESYLATE
     Indication: TYPE IIA HYPERLIPIDAEMIA
     Route: 048
     Dates: start: 20140524, end: 20140916
  3. VIT D(ERGOCALCIFEROL) [Concomitant]

REACTIONS (6)
  - Gastrointestinal disorder [None]
  - Drug ineffective [None]
  - Nausea [None]
  - Weight decreased [None]
  - Malaise [None]
  - Abdominal distension [None]

NARRATIVE: CASE EVENT DATE: 201406
